FAERS Safety Report 6410542-5 (Version None)
Quarter: 2009Q4

REPORT INFORMATION
  Report Type: 
  Country: None (occurrence: None)
  Receive Date: 20091020
  Receipt Date: 20091020
  Transmission Date: 20100525
  Serious: Yes (Other)
  Sender: FDA-Public Use
  Company Number: None

PATIENT
  Age: 7 Year
  Sex: Male
  Weight: 21.3191 kg

DRUGS (1)
  1. ROCEPHIN [Suspect]
     Indication: PNEUMONIA
     Dosage: 25ML 1X PER 24 HOURS IV
     Route: 042
     Dates: start: 20091015, end: 20091015

REACTIONS (3)
  - PRURITUS [None]
  - RASH GENERALISED [None]
  - URTICARIA [None]
